FAERS Safety Report 7371855-6 (Version None)
Quarter: 2011Q1

REPORT INFORMATION
  Report Type: 
  Country: None (occurrence: None)
  Receive Date: 20110322
  Receipt Date: 20110322
  Transmission Date: 20110831
  Serious: Yes (Other)
  Sender: FDA-Public Use
  Company Number: None

PATIENT
  Age: 33 Year
  Sex: Female
  Weight: 68 kg

DRUGS (1)
  1. ZONEGRAN [Suspect]
     Indication: WEIGHT DECREASED
     Dosage: 25MG DAILY PO
     Route: 048
     Dates: start: 20110305, end: 20110315

REACTIONS (1)
  - ANGLE CLOSURE GLAUCOMA [None]
